FAERS Safety Report 15439963 (Version 5)
Quarter: 2019Q1

REPORT INFORMATION
  Report Type: Report from Study
  Country: ZA (occurrence: ZA)
  Receive Date: 20180928
  Receipt Date: 20190204
  Transmission Date: 20190417
  Serious: Yes (Life-Threatening, Hospitalization)
  Sender: FDA-Public Use
  Company Number: ZA-SAKK-2018SA263335AA

PATIENT
  Age: 61 Year
  Sex: Male

DRUGS (11)
  1. INSULIN GLULISINE [Suspect]
     Active Substance: INSULIN GLULISINE
     Dosage: 12 U, TID
     Dates: start: 20180918
  2. TARGINACT [Concomitant]
     Active Substance: NALOXONE HYDROCHLORIDE\OXYCODONE HYDROCHLORIDE
     Dosage: UNK
  3. MYOPRIN [Concomitant]
     Active Substance: ASPIRIN
     Dosage: UNK
  4. APIDRA [Concomitant]
     Active Substance: INSULIN GLULISINE
     Dosage: UNK UNK, TID/ BS:12 UNITS, BL: 14 UNITS AND BB: 14 UNITS
     Dates: start: 20180918
  5. INSULIN GLARGINE [Suspect]
     Active Substance: INSULIN GLARGINE
     Indication: TYPE 2 DIABETES MELLITUS
     Dosage: 26 UNK, HS
     Route: 065
     Dates: start: 20030101
  6. INSULIN GLARGINE [Suspect]
     Active Substance: INSULIN GLARGINE
     Dosage: 24 U, HS
     Dates: start: 20180918
  7. SPIRACTIN [SPIRONOLACTONE] [Concomitant]
     Dosage: 25 MG, QD
     Dates: start: 20180921
  8. LANTUS [Concomitant]
     Active Substance: INSULIN GLARGINE
     Dosage: 34 IU, UNK
     Dates: start: 20180918
  9. INSULIN GLARGINE [Suspect]
     Active Substance: INSULIN GLARGINE
     Indication: TYPE 1 DIABETES MELLITUS
     Dosage: 18 UNITS BREAKFAST, 18 U AT LUNCH, 18 UNITS AT SUPPER AND 36 UNITS AT NIGHT
     Dates: start: 20180918
  10. INSULIN GLULISINE [Suspect]
     Active Substance: INSULIN GLULISINE
     Indication: TYPE 1 DIABETES MELLITUS
     Dosage: 16 U, TID
     Route: 065
     Dates: start: 20030101
  11. ASPAVOR [Concomitant]
     Active Substance: ATORVASTATIN
     Dosage: 20 MG, QD

REACTIONS (5)
  - Hypoaesthesia [Not Recovered/Not Resolved]
  - Hyperglycaemia [Not Recovered/Not Resolved]
  - Hypoglycaemia [Not Recovered/Not Resolved]
  - Spinal fusion surgery [Unknown]
  - Hypoglycaemia [Recovered/Resolved]

NARRATIVE: CASE EVENT DATE: 20180911
